FAERS Safety Report 9778244 (Version 1)
Quarter: 2013Q4

REPORT INFORMATION
  Report Type: Spontaneous
  Country: US (occurrence: US)
  Receive Date: 20131223
  Receipt Date: 20131223
  Transmission Date: 20140711
  Serious: No
  Sender: FDA-Public Use
  Company Number: US-JNJFOC-20131204834

PATIENT
  Age: 51 Year
  Sex: Female
  Weight: 63.5 kg

DRUGS (3)
  1. INVEGA [Suspect]
     Indication: UNEVALUABLE EVENT
     Route: 048
     Dates: start: 201310
  2. RISPERDAL [Suspect]
     Indication: UNEVALUABLE EVENT
     Route: 048
     Dates: end: 2013
  3. GEODON [Concomitant]
     Indication: UNEVALUABLE EVENT
     Route: 048
     Dates: start: 2012, end: 2013

REACTIONS (1)
  - Blood prolactin increased [Unknown]
